FAERS Safety Report 8869985 (Version 1)
Quarter: 2012Q4

REPORT INFORMATION
  Report Type: 
  Country: US (occurrence: US)
  Receive Date: 20121028
  Receipt Date: 20121028
  Transmission Date: 20130627
  Serious: No
  Sender: FDA-Public Use
  Company Number: US-009507513-1210USA010201

PATIENT
  Age: 69 Year
  Sex: Female

DRUGS (1)
  1. SINEMET [Suspect]
     Indication: PARKINSON^S DISEASE
     Dosage: 1 and a half tablets daily
     Route: 048
     Dates: start: 201207

REACTIONS (1)
  - Nausea [Not Recovered/Not Resolved]
